FAERS Safety Report 23427465 (Version 1)
Quarter: 2024Q1

REPORT INFORMATION
  Report Type: Spontaneous
  Country: US (occurrence: None)
  Receive Date: 20240119
  Receipt Date: 20240119
  Transmission Date: 20240409
  Serious: No
  Sender: FDA-Public Use
  Company Number: None

PATIENT
  Age: 60 Year
  Sex: Male
  Weight: 135 kg

DRUGS (12)
  1. PAXLOVID [Suspect]
     Active Substance: NIRMATRELVIR\RITONAVIR
     Indication: COVID-19
     Dosage: OTHER QUANTITY : 3 TABLET(S);?FREQUENCY : TWICE A DAY;?
     Route: 048
     Dates: start: 20240109, end: 20240114
  2. AMLODIPINE [Concomitant]
     Active Substance: AMLODIPINE BESYLATE
  3. LISINOPRIL [Concomitant]
     Active Substance: LISINOPRIL
  4. HYDROCHLOROTHIAZIDE [Concomitant]
     Active Substance: HYDROCHLOROTHIAZIDE
  5. ESCITALOPRAM [Concomitant]
     Active Substance: ESCITALOPRAM OXALATE
  6. LAMOTRIGINE [Concomitant]
     Active Substance: LAMOTRIGINE
  7. CAPLYTA [Concomitant]
     Active Substance: LUMATEPERONE
  8. VITAMINS [Concomitant]
     Active Substance: VITAMINS
  9. fiber capsule [Concomitant]
  10. vitamin D12 [Concomitant]
  11. MAGNESIUM [Concomitant]
     Active Substance: MAGNESIUM
  12. Sennosides with docusate [Concomitant]

REACTIONS (1)
  - Dysgeusia [None]

NARRATIVE: CASE EVENT DATE: 20240109
